FAERS Safety Report 6909690-2 (Version None)
Quarter: 2010Q3

REPORT INFORMATION
  Report Type: 
  Country: None (occurrence: None)
  Receive Date: 20100805
  Receipt Date: 20100729
  Transmission Date: 20110219
  Serious: Yes (Other)
  Sender: FDA-Public Use
  Company Number: US-AMGEN-QUU425265

PATIENT
  Sex: Male
  Weight: 92 kg

DRUGS (9)
  1. ARANESP [Suspect]
     Indication: RENAL FAILURE CHRONIC
     Route: 058
     Dates: start: 20080911
  2. METOPROLOL [Concomitant]
     Route: 048
  3. ANAGRELIDE HCL [Concomitant]
     Dates: start: 20050210
  4. HYDROXYUREA [Concomitant]
     Route: 048
     Dates: start: 20050210
  5. AMLODIPINE [Concomitant]
     Route: 048
  6. UNSPECIFIED VITAMINS [Concomitant]
  7. NEXIUM [Concomitant]
     Route: 048
  8. IRON [Concomitant]
  9. PROCRIT [Concomitant]
     Dates: start: 20050101

REACTIONS (6)
  - ANAEMIA [None]
  - DYSPNOEA EXERTIONAL [None]
  - LETHARGY [None]
  - MYELOPROLIFERATIVE DISORDER [None]
  - SOMNOLENCE [None]
  - WEIGHT DECREASED [None]
